FAERS Safety Report 8225321-6 (Version None)
Quarter: 2012Q1

REPORT INFORMATION
  Report Type: 
  Country: None (occurrence: None)
  Receive Date: 20120321
  Receipt Date: 20120314
  Transmission Date: 20120608
  Serious: Yes (Hospitalization)
  Sender: FDA-Public Use
  Company Number: US-GLAXOSMITHKLINE-A0969730A

PATIENT
  Age: 64 Year
  Sex: Female

DRUGS (13)
  1. METOPROLOL SUCCINATE [Concomitant]
  2. VITAMIN D [Concomitant]
  3. ASCORBIC ACID [Concomitant]
  4. ASPIRIN [Concomitant]
  5. HCL [Concomitant]
  6. VITAMIN B-12 [Concomitant]
  7. ADVAIR DISKUS 100/50 [Suspect]
     Indication: CHRONIC OBSTRUCTIVE PULMONARY DISEASE
     Dosage: 1PUFF PER DAY
     Route: 055
     Dates: start: 20080301
  8. LISINOPRIL [Concomitant]
  9. CPAP [Concomitant]
  10. POTASSIUM [Concomitant]
  11. VITAMIN D [Concomitant]
  12. AMLODIPINE [Concomitant]
  13. LEVOTHYROXINE SODIUM [Concomitant]

REACTIONS (3)
  - CARBON DIOXIDE INCREASED [None]
  - DYSKINESIA [None]
  - OXYGEN SATURATION DECREASED [None]
